FAERS Safety Report 8618680-3 (Version None)
Quarter: 2012Q3

REPORT INFORMATION
  Report Type: 
  Country: None (occurrence: None)
  Receive Date: 20120814
  Receipt Date: 20120814
  Transmission Date: 20120928
  Serious: Yes (Death, Other)
  Sender: FDA-Public Use
  Company Number: None

PATIENT
  Sex: Male
  Weight: 90.7194 kg

DRUGS (1)
  1. ENOXAPARIN [Suspect]
     Indication: DEEP VEIN THROMBOSIS
     Dosage: 100 MG/1.0ML  2 X DAILY SQ
     Route: 058
     Dates: start: 20120810, end: 20120817

REACTIONS (2)
  - NEEDLE ISSUE [None]
  - INJURY ASSOCIATED WITH DEVICE [None]
